FAERS Safety Report 5164597-9 (Version None)
Quarter: 2006Q4

REPORT INFORMATION
  Report Type: 
  Country: None (occurrence: None)
  Receive Date: 20061205
  Receipt Date: 20061108
  Transmission Date: 20070319
  Serious: Yes (Hospitalization)
  Sender: FDA-Public Use
  Company Number: NL-MERCK-0611NLD00011

PATIENT
  Age: 70 Year
  Sex: Female

DRUGS (1)
  1. COSOPT [Suspect]
     Route: 047
     Dates: start: 20061101

REACTIONS (2)
  - HYPOKALAEMIA [None]
  - SINUSITIS [None]
